FAERS Safety Report 20824206 (Version 1)
Quarter: 2022Q2

REPORT INFORMATION
  Report Type: Spontaneous
  Country: KR (occurrence: KR)
  Receive Date: 20220513
  Receipt Date: 20220513
  Transmission Date: 20220721
  Serious: Yes (Other)
  Sender: FDA-Public Use
  Company Number: KR-NOVARTISPH-NVSC2022KR110126

PATIENT
  Age: 58 Year
  Sex: Female

DRUGS (2)
  1. ELTROMBOPAG OLAMINE [Suspect]
     Active Substance: ELTROMBOPAG OLAMINE
     Indication: Immune thrombocytopenia
     Dosage: 25 MG, QD
     Route: 048
     Dates: start: 2018
  2. ELTROMBOPAG OLAMINE [Suspect]
     Active Substance: ELTROMBOPAG OLAMINE
     Dosage: 50 MG, QD (SUSTAINED RESPONSE)
     Route: 048
     Dates: start: 202204

REACTIONS (4)
  - Diabetes mellitus inadequate control [Unknown]
  - Glycosylated haemoglobin increased [Unknown]
  - Gingival bleeding [Unknown]
  - Petechiae [Unknown]
